FAERS Safety Report 4722386-0 (Version None)
Quarter: 2005Q3

REPORT INFORMATION
  Report Type: 
  Country: None (occurrence: None)
  Receive Date: 20050722
  Receipt Date: 20050324
  Transmission Date: 20060218
  Serious: No
  Sender: FDA-Public Use
  Company Number: US-GLAXOSMITHKLINE-A0551118A

PATIENT
  Age: 60 Year
  Sex: Female

DRUGS (10)
  1. AVANDIA [Suspect]
     Dosage: 8MG PER DAY
     Route: 048
     Dates: start: 20040101
  2. NEXUM [Concomitant]
  3. INDERAL [Concomitant]
  4. ALLEGRA [Concomitant]
  5. DICLOFENAC SODIUM [Concomitant]
  6. ROBAXIN [Concomitant]
  7. PAXIL [Concomitant]
  8. ANACIN [Concomitant]
  9. BENADRYL [Concomitant]
  10. GLYBURIDE [Concomitant]

REACTIONS (1)
  - WEIGHT INCREASED [None]
